FAERS Safety Report 8496349-6 (Version None)
Quarter: 2012Q3

REPORT INFORMATION
  Report Type: 
  Country: None (occurrence: None)
  Receive Date: 20120709
  Receipt Date: 20120703
  Transmission Date: 20120928
  Serious: No
  Sender: FDA-Public Use
  Company Number: US-PFIZER INC-2012118413

PATIENT
  Sex: Male
  Weight: 63.492 kg

DRUGS (3)
  1. DILANTIN [Suspect]
     Indication: CONVULSION
     Dosage: 300 MG, AT BED TIME DAILY
     Route: 048
     Dates: start: 20120201
  2. DILANTIN [Suspect]
     Dosage: 100 MG, CAPS AT HS (AT BEDTIME)
     Route: 048
     Dates: start: 20120220
  3. PERCOCET [Concomitant]
     Indication: PAIN
     Dosage: UNK
     Dates: start: 20120220

REACTIONS (1)
  - PRURITUS [None]
